FAERS Safety Report 4588304-3 (Version None)
Quarter: 2005Q1

REPORT INFORMATION
  Report Type: 
  Country: None (occurrence: None)
  Receive Date: 20050216
  Receipt Date: 20010817
  Transmission Date: 20050727
  Serious: Yes (Disabling, Other)
  Sender: FDA-Public Use
  Company Number: OMPQ-NO-0108S-0170

PATIENT
  Age: 55 Year
  Sex: Female

DRUGS (1)
  1. OMNIPAQUE 140 [Suspect]
     Dosage: 15 ML, SINGLE DOSE, I.T.
     Route: 037
     Dates: start: 19940318, end: 19940318

REACTIONS (10)
  - APHASIA [None]
  - ARACHNOIDITIS [None]
  - BURNING SENSATION [None]
  - DISTURBANCE IN ATTENTION [None]
  - FATIGUE [None]
  - HEADACHE [None]
  - INSOMNIA [None]
  - MEMORY IMPAIRMENT [None]
  - MYALGIA [None]
  - PAIN IN EXTREMITY [None]
